FAERS Safety Report 6063439-7 (Version None)
Quarter: 2009Q1

REPORT INFORMATION
  Report Type: 
  Country: None (occurrence: None)
  Receive Date: 20090203
  Receipt Date: 20090129
  Transmission Date: 20090719
  Serious: No
  Sender: FDA-Public Use
  Company Number: US-B.I. PHARMACEUTICALS,INC./RIDGEFIELD-2009-BP-00323BP

PATIENT
  Age: 79 Year
  Sex: Male

DRUGS (4)
  1. FLOMAX [Suspect]
     Indication: PROSTATOMEGALY
  2. ENALAPRIL MALEATE [Concomitant]
  3. CELEBREX [Concomitant]
  4. AVODART [Concomitant]

REACTIONS (2)
  - INSOMNIA [None]
  - RHINORRHOEA [None]
